FAERS Safety Report 6174846-6 (Version None)
Quarter: 2009Q2

REPORT INFORMATION
  Report Type: 
  Country: None (occurrence: None)
  Receive Date: 20090430
  Receipt Date: 20081126
  Transmission Date: 20091009
  Serious: No
  Sender: FDA-Public Use
  Company Number: US-ASTRAZENECA-2008UW26557

PATIENT
  Age: 54 Year
  Sex: Female

DRUGS (3)
  1. NEXIUM [Suspect]
     Route: 048
  2. NEXIUM [Suspect]
     Dosage: 40 MG DAILY AND THEN SHE TAKES 2 20 MG CAPSULES
     Route: 048
  3. NEXIUM [Suspect]
     Dosage: WITHOUT MEDICATION FOR TWO WEEKS
     Route: 048

REACTIONS (5)
  - ABDOMINAL DISCOMFORT [None]
  - ABDOMINAL PAIN UPPER [None]
  - DRUG DOSE OMISSION [None]
  - DRUG INEFFECTIVE [None]
  - INSOMNIA [None]
